FAERS Safety Report 25395847 (Version 1)
Quarter: 2025Q2

REPORT INFORMATION
  Report Type: Spontaneous
  Country: US (occurrence: None)
  Receive Date: 20250603
  Receipt Date: 20250603
  Transmission Date: 20250716
  Serious: Yes (Life-Threatening)
  Sender: FDA-CTU
  Company Number: None

PATIENT
  Age: 46 Year
  Sex: Female
  Weight: 71 kg

DRUGS (1)
  1. DAXXIFY [Suspect]
     Active Substance: DAXIBOTULINUMTOXIN A-LANM
     Dates: start: 20250520, end: 20250520

REACTIONS (8)
  - Facial paralysis [None]
  - Pruritus [None]
  - Vision blurred [None]
  - Asthenia [None]
  - Fatigue [None]
  - Dyspnoea exertional [None]
  - Dysarthria [None]
  - Eyelid ptosis [None]

NARRATIVE: CASE EVENT DATE: 20250521
